FAERS Safety Report 15497411 (Version 1)
Quarter: 2018Q4

REPORT INFORMATION
  Report Type: Spontaneous
  Country: US (occurrence: US)
  Receive Date: 20181015
  Receipt Date: 20181015
  Transmission Date: 20190205
  Serious: Yes (Life-Threatening, Disabling, Other)
  Sender: FDA-Public Use
  Company Number: US-PFIZER INC-2018413271

PATIENT
  Age: 20 Year
  Sex: Male
  Weight: 72.57 kg

DRUGS (3)
  1. LAMOTRIGINE. [Concomitant]
     Active Substance: LAMOTRIGINE
     Indication: SEIZURE
     Dosage: 25 MG, 2X/DAY (25 MG 2 A DAY ONE MORNING AND ONE NIGHT)
  2. TOPAMATE [Concomitant]
     Active Substance: TOPIRAMATE
     Indication: SEIZURE
     Dosage: 250 MG, DAILY (100 MG MORNING 150 MG AT NIGHT)
  3. ZARONTIN [Suspect]
     Active Substance: ETHOSUXIMIDE
     Indication: SEIZURE
     Dosage: 250 MG 750 MG IN MORNING AND NIGHT BY MOUTH GEL CAPS 3 IN MORNING AND NIGHT
     Route: 048

REACTIONS (1)
  - Drug ineffective [Unknown]
